FAERS Safety Report 9333397 (Version 1)
Quarter: 2013Q2

REPORT INFORMATION
  Report Type: Spontaneous
  Country: US (occurrence: US)
  Receive Date: 20130606
  Receipt Date: 20130606
  Transmission Date: 20140414
  Serious: No
  Sender: FDA-Public Use
  Company Number: US-GLAXOSMITHKLINE-A0994024A

PATIENT
  Age: 44 Year
  Sex: Male

DRUGS (4)
  1. LAMOTRIGINE [Suspect]
     Indication: BIPOLAR DISORDER
     Dosage: 200MG PER DAY
     Route: 048
     Dates: start: 2010
  2. LAMICTAL [Suspect]
     Indication: BIPOLAR DISORDER
     Route: 048
     Dates: start: 201207
  3. AMBIEN [Concomitant]
  4. LORAZEPAM [Concomitant]

REACTIONS (3)
  - Drug screen positive [Unknown]
  - Malaise [Unknown]
  - Feeling abnormal [Unknown]
